FAERS Safety Report 8563799-9 (Version None)
Quarter: 2012Q3

REPORT INFORMATION
  Report Type: 
  Country: None (occurrence: None)
  Receive Date: 20120803
  Receipt Date: 20120726
  Transmission Date: 20120928
  Serious: Yes (Hospitalization)
  Sender: FDA-Public Use
  Company Number: US-BRISTOL-MYERS SQUIBB COMPANY-16809196

PATIENT
  Sex: Male

DRUGS (2)
  1. WARFARIN SODIUM [Suspect]
  2. COUMADIN [Suspect]

REACTIONS (2)
  - HAEMORRHAGE INTRACRANIAL [None]
  - FALL [None]
